FAERS Safety Report 4969174-8 (Version None)
Quarter: 2006Q2

REPORT INFORMATION
  Report Type: 
  Country: None (occurrence: None)
  Receive Date: 20060405
  Receipt Date: 20060327
  Transmission Date: 20061013
  Serious: Yes (Hospitalization)
  Sender: FDA-Public Use
  Company Number: 217234

PATIENT
  Age: 63 Year
  Sex: Female
  Weight: 72.3 kg

DRUGS (7)
  1. BEVACIZUMAB) PWDR + SOLVENT, INFUSION SOLN, 100MG [Suspect]
     Indication: OVARIAN CANCER
     Dosage: 1118 MG, Q3W, INTRAVENOUS
     Route: 042
     Dates: start: 20050511, end: 20050802
  2. COLACE (DOCUSATE SODIUM) [Concomitant]
  3. ATIVAN [Concomitant]
  4. EFFEXOR [Concomitant]
  5. MULTI-VITAMINS [Concomitant]
  6. COMPAZINE [Concomitant]
  7. REVATIO (SILDENAFIL CITRATE) [Concomitant]

REACTIONS (5)
  - ACTIVATED PARTIAL THROMBOPLASTIN TIME PROLONGED [None]
  - PROTHROMBIN TIME PROLONGED [None]
  - PULMONARY EMBOLISM [None]
  - PULMONARY HYPERTENSION [None]
  - SINUS ARRHYTHMIA [None]
